FAERS Safety Report 4741488-6 (Version None)
Quarter: 2005Q3

REPORT INFORMATION
  Report Type: 
  Country: None (occurrence: None)
  Receive Date: 20050808
  Receipt Date: 20050518
  Transmission Date: 20060218
  Serious: Yes (Hospitalization)
  Sender: FDA-Public Use
  Company Number: 2005FR-00193

PATIENT
  Age: 90 Year

DRUGS (7)
  1. ASPIRIN [Suspect]
     Indication: CARDIAC FAILURE
     Dosage: 75 MG
     Route: 048
     Dates: end: 20041209
  2. ASPIRIN [Suspect]
     Indication: DIABETES MELLITUS NON-INSULIN-DEPENDENT
     Dosage: 75 MG
     Route: 048
     Dates: end: 20041209
  3. ASPIRIN [Suspect]
     Indication: HYPERTENSION
     Dosage: 75 MG
     Route: 048
     Dates: end: 20041209
  4. TOLBUTAMIDE [Concomitant]
  5. TIMOLOL MALEATE [Concomitant]
  6. DOXEPIN HCL [Concomitant]
  7. BUSULPHAN [Concomitant]

REACTIONS (1)
  - UPPER GASTROINTESTINAL HAEMORRHAGE [None]
